FAERS Safety Report 25507645 (Version 1)
Quarter: 2025Q3

REPORT INFORMATION
  Report Type: Spontaneous
  Country: EU (occurrence: EU)
  Receive Date: 20250703
  Receipt Date: 20250703
  Transmission Date: 20251021
  Serious: Yes (Other)
  Sender: TEVA
  Company Number: None

PATIENT
  Age: 47 Year
  Sex: Male
  Weight: 95 kg

DRUGS (1)
  1. AMLODIPINE [Suspect]
     Active Substance: AMLODIPINE BESYLATE
     Indication: Hypertension
     Dosage: 1X PER DAG 1 STUK, AMLODIPINE TABLET   5MG / BRAND NAME NOT SPECIFIED
     Route: 048
     Dates: start: 20150224, end: 20250602

REACTIONS (1)
  - Erectile dysfunction [Recovered/Resolved]
